FAERS Safety Report 8627750 (Version 2)
Quarter: 2012Q4

REPORT INFORMATION
  Report Type: Report from Study
  Country: JP (occurrence: JP)
  Receive Date: 20120621
  Receipt Date: 20121212
  Transmission Date: 20130627
  Serious: Yes (Death, Other)
  Sender: FDA-Public Use
  Company Number: JP-ASTELLAS-2012US005561

PATIENT
  Age: 65 Year
  Sex: Female
  Weight: 55 kg

DRUGS (15)
  1. ERLOTINIB TABLET [Suspect]
     Indication: ADENOCARCINOMA PANCREAS
     Dosage: 100 mg, UID/QD
     Route: 048
     Dates: start: 20111109, end: 20120116
  2. ERLOTINIB TABLET [Suspect]
     Dosage: 100 mg, UID/QD
     Route: 048
     Dates: start: 20120208, end: 20120320
  3. GEMCITABINE HYDROCHLORIDE [Concomitant]
     Indication: ADENOCARCINOMA PANCREAS
     Dosage: 1000 mg/m2, Weekly
     Route: 041
     Dates: start: 20111116, end: 20111116
  4. GEMCITABINE HYDROCHLORIDE [Concomitant]
     Dosage: 1000 mg/m2, Weekly
     Route: 041
     Dates: start: 20111130, end: 20111130
  5. GEMCITABINE HYDROCHLORIDE [Concomitant]
     Dosage: 1000 mg/m2, Weekly
     Route: 041
     Dates: start: 20111207, end: 20111207
  6. GEMCITABINE HYDROCHLORIDE [Concomitant]
     Dosage: 1000 mg/m2, Weekly
     Route: 041
     Dates: start: 20111214, end: 20111214
  7. GEMCITABINE HYDROCHLORIDE [Concomitant]
     Dosage: 1000 mg/m2, Weekly
     Route: 041
     Dates: start: 20111228, end: 20111228
  8. GEMCITABINE HYDROCHLORIDE [Concomitant]
     Dosage: 1000 mg/m2, Weekly
     Route: 041
     Dates: start: 20120104, end: 20120104
  9. GEMCITABINE HYDROCHLORIDE [Concomitant]
     Dosage: 1000 mg/m2, Weekly
     Route: 041
     Dates: start: 20120111, end: 20120111
  10. GEMCITABINE HYDROCHLORIDE [Concomitant]
     Dosage: 1000 mg/m2, Weekly
     Route: 041
     Dates: start: 20120208, end: 20120208
  11. GEMCITABINE HYDROCHLORIDE [Concomitant]
     Dosage: 1000 mg/m2, Weekly
     Route: 041
     Dates: start: 20120222, end: 20120222
  12. GEMCITABINE HYDROCHLORIDE [Concomitant]
     Dosage: 1000 mg/m2, Weekly
     Route: 041
     Dates: start: 20120228, end: 20120228
  13. URSO                               /00465701/ [Concomitant]
     Indication: PRODUCT USED FOR UNKNOWN INDICATION
     Dosage: 3 DF, UID/QD
     Route: 048
     Dates: start: 20120210, end: 20120228
  14. CRAVIT [Concomitant]
     Indication: PRODUCT USED FOR UNKNOWN INDICATION
     Dosage: 500 mg, UID/QD
     Route: 048
     Dates: start: 20120222, end: 20120224
  15. BIFIDOBACTERIUM [Concomitant]
     Indication: PRODUCT USED FOR UNKNOWN INDICATION
     Dosage: 3 DF, UID/QD
     Route: 048
     Dates: start: 20120229, end: 20120320

REACTIONS (5)
  - Cholangitis [Unknown]
  - Rash [Not Recovered/Not Resolved]
  - Aspiration [Fatal]
  - Vomiting [Fatal]
  - Ascites [Unknown]
